FAERS Safety Report 10735872 (Version 1)
Quarter: 2015Q1

REPORT INFORMATION
  Report Type: Report from Study
  Country: US (occurrence: US)
  Receive Date: 20150126
  Receipt Date: 20150126
  Transmission Date: 20150721
  Serious: Yes (Hospitalization)
  Sender: FDA-Public Use
  Company Number: US-BIOGENIDEC-2015BI009225

PATIENT
  Age: 61 Year
  Sex: Female

DRUGS (10)
  1. TECFIDERA [Suspect]
     Active Substance: DIMETHYL FUMARATE
     Indication: MULTIPLE SCLEROSIS
     Route: 048
     Dates: start: 20141120
  2. FLONASE [Concomitant]
     Active Substance: FLUTICASONE PROPIONATE
  3. MONTELUKAST SODIUM. [Concomitant]
     Active Substance: MONTELUKAST SODIUM
  4. RISPERDAL [Concomitant]
     Active Substance: RISPERIDONE
  5. OMEPRAZOLE. [Concomitant]
     Active Substance: OMEPRAZOLE
  6. LISINOPRIL. [Concomitant]
     Active Substance: LISINOPRIL
  7. CYMBALTA [Concomitant]
     Active Substance: DULOXETINE HYDROCHLORIDE
  8. SIMVASTATIN. [Concomitant]
     Active Substance: SIMVASTATIN
  9. VITAMIN D [Concomitant]
     Active Substance: CHOLECALCIFEROL
  10. MOTRING [Concomitant]

REACTIONS (4)
  - Blood potassium decreased [Not Recovered/Not Resolved]
  - Heart rate increased [Not Recovered/Not Resolved]
  - Hallucination [Not Recovered/Not Resolved]
  - Optic neuritis [Not Recovered/Not Resolved]

NARRATIVE: CASE EVENT DATE: 201412
